FAERS Safety Report 6214395-X (Version None)
Quarter: 2009Q2

REPORT INFORMATION
  Report Type: 
  Country: None (occurrence: None)
  Receive Date: 20090602
  Receipt Date: 20090521
  Transmission Date: 20091009
  Serious: Yes (Death)
  Sender: FDA-Public Use
  Company Number: GXKR2009CU06099

PATIENT
  Age: 34 Year
  Sex: Male

DRUGS (2)
  1. CYCLOSPORINE [Suspect]
     Indication: RENAL TRANSPLANT
     Dosage: 5 MG/KG, QD ; 2.5 MG/KG, QD
  2. PREDNISONE [Suspect]
     Indication: RENAL TRANSPLANT

REACTIONS (7)
  - ACARODERMATITIS [None]
  - BACTERIAL SEPSIS [None]
  - EPIDERMAL NECROSIS [None]
  - HERPES VIRUS INFECTION [None]
  - HYPOXIA [None]
  - METABOLIC ACIDOSIS [None]
  - RENAL IMPAIRMENT [None]
